FAERS Safety Report 6537459-X (Version None)
Quarter: 2009Q4

REPORT INFORMATION
  Report Type: 
  Country: None (occurrence: None)
  Receive Date: 20091229
  Receipt Date: 20091001
  Transmission Date: 20100525
  Serious: No
  Sender: FDA-Public Use
  Company Number: 1000009208

PATIENT
  Age: 77 Year
  Sex: Female

DRUGS (8)
  1. BYSTOLIC [Suspect]
     Indication: HYPERTENSION
     Dosage: 10 MG (5 MG,2 IN 1 D), ORAL
     Route: 048
     Dates: start: 20090601
  2. PLAVIX [Concomitant]
  3. SIMVASTATIN [Concomitant]
  4. NORVASC [Concomitant]
  5. POTASSIUM [Concomitant]
  6. LASIX [Concomitant]
  7. EVISTA [Concomitant]
  8. ASPIRIN [Concomitant]

REACTIONS (1)
  - AGEUSIA [None]
